FAERS Safety Report 9179386 (Version 1)
Quarter: 2013Q1

REPORT INFORMATION
  Report Type: Spontaneous
  Country: JP (occurrence: JP)
  Receive Date: 20130321
  Receipt Date: 20130321
  Transmission Date: 20140127
  Serious: Yes (Hospitalization, Other)
  Sender: FDA-Public Use
  Company Number: JP-PFIZER INC-2013058082

PATIENT
  Age: 78 Year
  Sex: Male
  Weight: 84 kg

DRUGS (7)
  1. ZYVOX [Suspect]
     Dosage: 600 MG, 2X/DAY
     Route: 048
     Dates: start: 20130115, end: 20130206
  2. ZYVOX [Suspect]
     Dosage: UNK
     Route: 048
     Dates: start: 20130221, end: 20130228
  3. NEXIUM [Suspect]
     Indication: PROPHYLAXIS
     Dosage: 20 MG, 1X/DAY
     Route: 048
     Dates: start: 20130123, end: 20130228
  4. WARFARIN [Suspect]
     Dosage: 2.5 MG, 1X/DAY
     Route: 048
     Dates: end: 20130123
  5. WARFARIN [Suspect]
     Dosage: 1.5 MG, 1X/DAY
     Route: 048
     Dates: start: 20130124, end: 20130127
  6. WARFARIN [Suspect]
     Dosage: 1 MG, 1X/DAY
     Route: 048
     Dates: start: 20130128, end: 20130131
  7. WARFARIN [Suspect]
     Dosage: 2.5 MG, 1X/DAY
     Route: 048
     Dates: start: 20130201

REACTIONS (2)
  - International normalised ratio increased [Recovered/Resolved]
  - White blood cell count decreased [Recovered/Resolved]
